FAERS Safety Report 21815670 (Version 6)
Quarter: 2023Q2

REPORT INFORMATION
  Report Type: Spontaneous
  Country: PT (occurrence: PT)
  Receive Date: 20230104
  Receipt Date: 20230517
  Transmission Date: 20230722
  Serious: Yes (Hospitalization, Other)
  Sender: FDA-Public Use
  Company Number: PT-GT-20221438

PATIENT
  Age: 45 Year
  Sex: Male

DRUGS (7)
  1. ETORICOXIB [Suspect]
     Active Substance: ETORICOXIB
     Indication: Spinal osteoarthritis
     Dosage: 90 MILLIGRAM, QD, 90 MG/DAY
     Route: 065
  2. ETORICOXIB [Suspect]
     Active Substance: ETORICOXIB
     Indication: Axial spondyloarthritis
  3. CELECOXIB [Suspect]
     Active Substance: CELECOXIB
     Indication: Spinal osteoarthritis
     Dosage: 200 MILLIGRAM, QD, 200 MG/DAY
     Route: 065
  4. CELECOXIB [Suspect]
     Active Substance: CELECOXIB
     Indication: Axial spondyloarthritis
  5. SIMPONI [Suspect]
     Active Substance: GOLIMUMAB
     Indication: Axial spondyloarthritis
     Dosage: UNK
     Route: 065
  6. SIMPONI [Suspect]
     Active Substance: GOLIMUMAB
     Indication: Spinal osteoarthritis
  7. URSODIOL [Concomitant]
     Active Substance: URSODIOL
     Indication: Primary biliary cholangitis
     Dosage: UNK
     Route: 065

REACTIONS (8)
  - Blood immunoglobulin M increased [Recovered/Resolved]
  - Renal impairment [Recovered/Resolved]
  - Blood creatine increased [Recovering/Resolving]
  - Tubulointerstitial nephritis [Unknown]
  - Asthenia [Recovered/Resolved with Sequelae]
  - Proteinuria [Recovered/Resolved]
  - Chronic kidney disease [Recovering/Resolving]
  - Primary biliary cholangitis [Unknown]
